FAERS Safety Report 8546456 (Version 3)
Quarter: 2014Q4

REPORT INFORMATION
  Report Type: Report from Study
  Country: US (occurrence: US)
  Receive Date: 20120504
  Receipt Date: 20141103
  Transmission Date: 20150529
  Serious: Yes (Other)
  Sender: FDA-Public Use
  Company Number: US-ASTELLAS-2012US004273

PATIENT
  Age: 70 Year
  Sex: Male

DRUGS (8)
  1. COUMADIN [Concomitant]
     Active Substance: WARFARIN SODIUM
     Indication: PRODUCT USED FOR UNKNOWN INDICATION
     Route: 048
     Dates: start: 20090902
  2. LISINOPRIL. [Concomitant]
     Active Substance: LISINOPRIL
     Indication: BLOOD PRESSURE
     Route: 048
     Dates: start: 20090902
  3. TUSSIONEX                          /05505201/ [Concomitant]
     Indication: COUGH
     Route: 048
     Dates: start: 20091026
  4. PACLITAXEL. [Concomitant]
     Active Substance: PACLITAXEL
     Indication: PRODUCT USED FOR UNKNOWN INDICATION
     Dosage: UNK UNK, UNKNOWN FREQ.
     Route: 065
     Dates: start: 20090330
  5. PROMETHAZINE [Concomitant]
     Active Substance: PROMETHAZINE\PROMETHAZINE HYDROCHLORIDE
     Indication: NAUSEA
     Route: 048
     Dates: start: 20090320, end: 20120406
  6. CARBOPLATIN. [Concomitant]
     Active Substance: CARBOPLATIN
     Indication: PRODUCT USED FOR UNKNOWN INDICATION
     Dosage: UNK UNK, UNKNOWN FREQ.
     Route: 065
     Dates: start: 20090330
  7. ERLOTINIB [Suspect]
     Active Substance: ERLOTINIB
     Indication: NON-SMALL CELL LUNG CANCER
     Route: 048
     Dates: start: 20090212, end: 20120402
  8. ERLOTINIB [Suspect]
     Active Substance: ERLOTINIB
     Indication: LUNG NEOPLASM MALIGNANT

REACTIONS (15)
  - Renal failure [Unknown]
  - Fungal skin infection [Unknown]
  - Dermatitis acneiform [Recovering/Resolving]
  - Lung consolidation [Unknown]
  - Vasculitis [Recovered/Resolved]
  - Henoch-Schonlein purpura [Recovered/Resolved]
  - Haematuria [Unknown]
  - Nausea [Unknown]
  - Inappropriate schedule of drug administration [Unknown]
  - Pneumonia [Unknown]
  - Incorrect dose administered [Unknown]
  - Folliculitis [Unknown]
  - Skin toxicity [Unknown]
  - Rash [Unknown]
  - Henoch-Schonlein purpura [Recovered/Resolved]

NARRATIVE: CASE EVENT DATE: 20090912
